FAERS Safety Report 7025458-3 (Version None)
Quarter: 2010Q4

REPORT INFORMATION
  Report Type: 
  Country: None (occurrence: None)
  Receive Date: 20101001
  Receipt Date: 20100928
  Transmission Date: 20110411
  Serious: Yes (Hospitalization)
  Sender: FDA-Public Use
  Company Number: US-GILEAD-2010-0032065

PATIENT
  Sex: Female
  Weight: 95.794 kg

DRUGS (16)
  1. LETAIRIS [Suspect]
     Indication: PULMONARY ARTERIAL HYPERTENSION
     Route: 048
     Dates: start: 20100805
  2. COUMADIN [Concomitant]
  3. LASIX [Concomitant]
  4. DIOVAN [Concomitant]
  5. NORVASC [Concomitant]
  6. PAXIL [Concomitant]
  7. LIPITOR [Concomitant]
  8. CLONAZEPAM [Concomitant]
  9. METFORMIN HCL [Concomitant]
  10. PRANDIN [Concomitant]
  11. ADVAIR DISKUS 100/50 [Concomitant]
  12. POTASSIUM CHLORIDE [Concomitant]
  13. PLAVIX [Concomitant]
  14. NITROGLYCERIN [Concomitant]
  15. ACTOS [Concomitant]
  16. ASPIRIN [Concomitant]

REACTIONS (3)
  - CARDIAC DISORDER [None]
  - DYSPNOEA [None]
  - PNEUMONIA [None]
